FAERS Safety Report 10223453 (Version 1)
Quarter: 2014Q2

REPORT INFORMATION
  Report Type: Spontaneous
  Country: US (occurrence: None)
  Receive Date: 20140606
  Receipt Date: 20140606
  Transmission Date: 20141212
  Serious: Yes (Hospitalization)
  Sender: FDA-Public Use
  Company Number: None

PATIENT
  Age: 79 Year
  Sex: Male

DRUGS (7)
  1. RIVAROXABAN [Suspect]
     Indication: ATRIAL FIBRILLATION
     Route: 048
  2. NAPROXEN SODIUM [Suspect]
     Indication: PAIN
     Route: 048
  3. ACETAMINOPHEN (TYLENOL) [Concomitant]
  4. CARVEDILOL (COREG) [Concomitant]
  5. DIGOXIN (LANOXIN) [Concomitant]
  6. FINASTERIDE (PROSCAR) [Suspect]
  7. LISINOPRIL (PRINIVIL, ZESTRIL) [Concomitant]

REACTIONS (6)
  - Faeces discoloured [None]
  - Abdominal pain [None]
  - Occult blood positive [None]
  - Haemoglobin decreased [None]
  - Gastrointestinal haemorrhage [None]
  - Gastritis erosive [None]
